FAERS Safety Report 8506268 (Version 5)
Quarter: 2013Q1

REPORT INFORMATION
  Report Type: Spontaneous
  Country: US (occurrence: US)
  Receive Date: 20120412
  Receipt Date: 20130201
  Transmission Date: 20140127
  Serious: No
  Sender: FDA-Public Use
  Company Number: US-PFIZER INC-2012090020

PATIENT
  Age: 5 Year
  Sex: Male
  Weight: 13 kg

DRUGS (7)
  1. GENOTROPIN [Suspect]
     Indication: GROWTH RETARDATION
     Dosage: 0.6 MG, 1X/DAY
     Route: 058
     Dates: start: 20120321
  2. GENOTROPIN [Suspect]
     Dosage: 0.6 MG, 1X/DAY
     Dates: start: 20120330
  3. GENOTROPIN [Suspect]
  4. TENEX [Concomitant]
     Indication: ATTENTION DEFICIT/HYPERACTIVITY DISORDER
     Dosage: UNK
  5. TENEX [Concomitant]
     Indication: ATTENTION DEFICIT/HYPERACTIVITY DISORDER
  6. MELATONIN [Concomitant]
     Dosage: UNK
  7. PERIACTIN [Concomitant]
     Indication: DECREASED APPETITE
     Dosage: UNK, AS NEEDED

REACTIONS (4)
  - Middle insomnia [Not Recovered/Not Resolved]
  - Crying [Not Recovered/Not Resolved]
  - Fatigue [Not Recovered/Not Resolved]
  - Headache [Unknown]
